FAERS Safety Report 8352526-6 (Version None)
Quarter: 2012Q2

REPORT INFORMATION
  Report Type: 
  Country: None (occurrence: None)
  Receive Date: 20120511
  Receipt Date: 20120508
  Transmission Date: 20120825
  Serious: Yes (Other)
  Sender: FDA-Public Use
  Company Number: PHEH2012US005028

PATIENT
  Sex: Male
  Weight: 85.17 kg

DRUGS (1)
  1. GILENYA [Suspect]
     Indication: MULTIPLE SCLEROSIS
     Dosage: 0.5 MG, QD
     Route: 048
     Dates: start: 20120206, end: 20120424

REACTIONS (2)
  - HEPATIC ENZYME INCREASED [None]
  - BLOOD PRESSURE FLUCTUATION [None]
